FAERS Safety Report 11350495 (Version 1)
Quarter: 2015Q3

REPORT INFORMATION
  Report Type: Spontaneous
  Country: US (occurrence: None)
  Receive Date: 20150805
  Receipt Date: 20150805
  Transmission Date: 20151125
  Serious: No
  Sender: FDA-Public Use
  Company Number: None

PATIENT
  Age: 51 Year
  Sex: Female

DRUGS (14)
  1. ZOLPIDEM [Suspect]
     Active Substance: ZOLPIDEM\ZOLPIDEM TARTRATE
     Indication: SEDATION
     Route: 048
     Dates: start: 20141123, end: 20141123
  2. HYDROMORPHONE [Concomitant]
     Active Substance: HYDROMORPHONE
  3. HYDROMORPHONE [Suspect]
     Active Substance: HYDROMORPHONE
     Dosage: PRN  PCA
  4. FAMOTIDINE. [Concomitant]
     Active Substance: FAMOTIDINE
  5. TOPIRAMATE. [Concomitant]
     Active Substance: TOPIRAMATE
  6. LORAZAPAM [Concomitant]
     Active Substance: LORAZEPAM
  7. SIMETHICONE (DIMETHICONE) [Concomitant]
     Active Substance: DIMETHICONE
  8. AMLODIPINE [Concomitant]
     Active Substance: AMLODIPINE BESYLATE
  9. LAMOTRIGINE. [Concomitant]
     Active Substance: LAMOTRIGINE
  10. LIDOCAINE. [Concomitant]
     Active Substance: LIDOCAINE
  11. HEPARIN [Concomitant]
     Active Substance: HEPARIN SODIUM
  12. CARVEDILOL. [Concomitant]
     Active Substance: CARVEDILOL
  13. DIAZEPAM. [Concomitant]
     Active Substance: DIAZEPAM
  14. FENTANYL / BUPIVACAINE [Concomitant]

REACTIONS (5)
  - Sedation [None]
  - Somnolence [None]
  - Blood glucose decreased [None]
  - Self-medication [None]
  - Disorientation [None]

NARRATIVE: CASE EVENT DATE: 20141123
